FAERS Safety Report 19376987 (Version 1)
Quarter: 2021Q2

REPORT INFORMATION
  Report Type: Spontaneous
  Country: GB (occurrence: GB)
  Receive Date: 20210605
  Receipt Date: 20210605
  Transmission Date: 20210717
  Serious: Yes (Other)
  Sender: FDA-Public Use
  Company Number: GB-TEVA-2021-GB-1918399

PATIENT
  Age: 44 Year
  Sex: Female
  Weight: 83 kg

DRUGS (8)
  1. CODEINE PHOSPHATE [Concomitant]
     Active Substance: CODEINE PHOSPHATE
     Dosage: ONE OR TWO TO BE TAKEN UP TO FOUR TIMES A DAY
     Dates: start: 20210521
  2. CYCLIZINE [Concomitant]
     Active Substance: CYCLIZINE
     Dosage: 3 DOSAGE FORMS DAILY;
     Dates: start: 20210226, end: 20210312
  3. HYDROXOCOBALAMIN [Concomitant]
     Active Substance: HYDROXOCOBALAMIN
     Dosage: 1 DF
     Route: 030
     Dates: start: 20190118
  4. SUMATRIPTAN. [Concomitant]
     Active Substance: SUMATRIPTAN
     Dosage: 1 DF
     Dates: start: 20210412, end: 20210510
  5. TOPIRAMATE. [Suspect]
     Active Substance: TOPIRAMATE
     Dosage: TO BE TAKEN AS DIRECTED BY NEUROLOGY, 50 MG
     Dates: start: 20210430
  6. FLUOXETINE [Concomitant]
     Active Substance: FLUOXETINE HYDROCHLORIDE
     Dosage: 2 DOSAGE FORMS DAILY;
     Dates: start: 20200324
  7. PROPRANOLOL [Concomitant]
     Active Substance: PROPRANOLOL HYDROCHLORIDE
     Dosage: 1 DOSAGE FORMS DAILY; INCREASING.
     Dates: start: 20210309
  8. LEVOTHYROXINE. [Concomitant]
     Active Substance: LEVOTHYROXINE
     Dosage: 1 DOSAGE FORMS DAILY; EACH MORNING
     Dates: start: 20200324

REACTIONS (7)
  - Hypoaesthesia [Unknown]
  - Eye swelling [Unknown]
  - Skin abrasion [Recovered/Resolved]
  - Rash [Recovered/Resolved]
  - Dysgeusia [Unknown]
  - Erythema [Unknown]
  - Fatigue [Unknown]

NARRATIVE: CASE EVENT DATE: 20210522
